FAERS Safety Report 6782170-3 (Version None)
Quarter: 2010Q2

REPORT INFORMATION
  Report Type: 
  Country: None (occurrence: None)
  Receive Date: 20100621
  Receipt Date: 20100618
  Transmission Date: 20101027
  Serious: Yes (Hospitalization, Other)
  Sender: FDA-Public Use
  Company Number: US-ROXANE LABORATORIES, INC.-2010-RO-00733RO

PATIENT
  Age: 7 Year
  Sex: Male

DRUGS (9)
  1. LORAZEPAM [Suspect]
     Indication: ABNORMAL BEHAVIOUR
  2. DIGOXIN [Suspect]
  3. FUROSEMIDE [Suspect]
  4. OXYGEN [Suspect]
     Indication: PULMONARY HYPERTENSION
     Route: 055
  5. ALDACTONE [Suspect]
  6. INHALED STEROID [Suspect]
     Route: 055
  7. LEVALBUTERAL [Suspect]
  8. POTASSIUM CHLORIDE [Suspect]
  9. SILDENAFIL [Suspect]
     Indication: PULMONARY HYPERTENSION

REACTIONS (5)
  - ABNORMAL BEHAVIOUR [None]
  - IMPULSIVE BEHAVIOUR [None]
  - PSYCHOMOTOR HYPERACTIVITY [None]
  - PULMONARY OEDEMA [None]
  - PYREXIA [None]
